FAERS Safety Report 23729003 (Version 1)
Quarter: 2024Q2

REPORT INFORMATION
  Report Type: Spontaneous
  Country: IT (occurrence: None)
  Receive Date: 20240410
  Receipt Date: 20240410
  Transmission Date: 20240716
  Serious: Yes (Hospitalization)
  Sender: FDA-Public Use
  Company Number: 2024A083453

PATIENT
  Age: 53 Year
  Sex: Male
  Weight: 78 kg

DRUGS (8)
  1. ACALABRUTINIB [Suspect]
     Active Substance: ACALABRUTINIB
     Indication: Chronic lymphocytic leukaemia
     Route: 048
     Dates: start: 20220805, end: 20221001
  2. DOXORUBICIN [Suspect]
     Active Substance: DOXORUBICIN
     Indication: Chronic lymphocytic leukaemia
     Dates: start: 20230116, end: 20230203
  3. CYTARABINE [Suspect]
     Active Substance: CYTARABINE
     Indication: Chronic lymphocytic leukaemia
     Dates: start: 20230106, end: 20230203
  4. CYCLOPHOSPHAMIDE [Suspect]
     Active Substance: CYCLOPHOSPHAMIDE
     Indication: Chronic lymphocytic leukaemia
     Dates: start: 20230116, end: 20230203
  5. RITUXIMAB [Suspect]
     Active Substance: RITUXIMAB
     Indication: Chronic lymphocytic leukaemia
     Dates: start: 20230116, end: 20230203
  6. PREDNISONE [Suspect]
     Active Substance: PREDNISONE
     Indication: Chronic lymphocytic leukaemia
     Dates: start: 20230116, end: 20230203
  7. VINCRISTINE [Suspect]
     Active Substance: VINCRISTINE
     Indication: Chronic lymphocytic leukaemia
     Dates: start: 20230116, end: 20230203
  8. METHOTREXATE [Suspect]
     Active Substance: METHOTREXATE
     Indication: Chronic lymphocytic leukaemia

REACTIONS (1)
  - Cardiac arrest [Unknown]

NARRATIVE: CASE EVENT DATE: 20230203
